FAERS Safety Report 25213093 (Version 1)
Quarter: 2025Q2

REPORT INFORMATION
  Report Type: Spontaneous
  Country: IT (occurrence: IT)
  Receive Date: 20250418
  Receipt Date: 20250418
  Transmission Date: 20250717
  Serious: Yes (Other)
  Sender: TEVA
  Company Number: None

PATIENT
  Age: 61 Year
  Sex: Female

DRUGS (1)
  1. LEVOFLOXACIN [Suspect]
     Active Substance: LEVOFLOXACIN
     Indication: Dermatitis
     Route: 048
     Dates: start: 202403

REACTIONS (6)
  - Myalgia [Recovered/Resolved with Sequelae]
  - Tenosynovitis [Recovered/Resolved with Sequelae]
  - Gastrointestinal pain [Recovered/Resolved with Sequelae]
  - Bursitis [Recovered/Resolved with Sequelae]
  - Tendonitis [Recovered/Resolved with Sequelae]
  - Insomnia [Recovered/Resolved with Sequelae]

NARRATIVE: CASE EVENT DATE: 20240401
